FAERS Safety Report 14261695 (Version 10)
Quarter: 2019Q3

REPORT INFORMATION
  Report Type: Spontaneous
  Country: FR (occurrence: FR)
  Receive Date: 20171208
  Receipt Date: 20190708
  Transmission Date: 20191004
  Serious: Yes (Hospitalization, Other)
  Sender: FDA-Public Use
  Company Number: FR-AUROBINDO-AUR-APL-2015-05047

PATIENT

DRUGS (22)
  1. LIDOCAINE SOLUTION FOR INJECTION [Suspect]
     Active Substance: LIDOCAINE
     Indication: SPINAL PAIN
     Dosage: 20 MILLIGRAM PER MILLILITRE
     Route: 065
  2. ADRENALINE [Suspect]
     Active Substance: EPINEPHRINE
     Indication: EPIDURAL ANALGESIA
     Dosage: 2 MILLIGRAM, DAILY
     Route: 008
  3. KETOPROFEN. [Suspect]
     Active Substance: KETOPROFEN
     Indication: PAIN
  4. MORPHINE [Suspect]
     Active Substance: MORPHINE
     Indication: EPIDURAL ANALGESIA
     Dosage: 2 MG, UNK
     Route: 065
  5. MORPHINE [Suspect]
     Active Substance: MORPHINE
     Indication: ANALGESIC THERAPY
     Dosage: 8 MILLIGRAM, ONCE A DAY
     Route: 008
  6. ASPIRIN. [Suspect]
     Active Substance: ASPIRIN
     Indication: PRODUCT USED FOR UNKNOWN INDICATION
     Dosage: UNK
     Route: 065
  7. ENOXAPARIN [Suspect]
     Active Substance: ENOXAPARIN
     Indication: THROMBOSIS PROPHYLAXIS
  8. LIDOCAINE SOLUTION FOR INJECTION [Suspect]
     Active Substance: LIDOCAINE
     Indication: ANAESTHESIA
     Dosage: 300 MILLIGRAM TOTAL
     Route: 008
  9. ROPIVACAINE. [Suspect]
     Active Substance: ROPIVACAINE HYDROCHLORIDE
     Indication: EPIDURAL ANALGESIA
     Dosage: 20 ML, UNK
     Route: 008
  10. SUFENTANIL [Suspect]
     Active Substance: SUFENTANIL
     Indication: EPIDURAL ANALGESIA
     Dosage: 0.25 UNK, UNK
     Route: 065
  11. ENOXAPARIN [Suspect]
     Active Substance: ENOXAPARIN
     Indication: EMBOLISM VENOUS
     Dosage: 40 MILLIGRAM, DAILY
     Route: 058
  12. SUFENTANIL [Suspect]
     Active Substance: SUFENTANIL
     Indication: ANAESTHESIA
     Dosage: 1 MG/ML
     Route: 008
  13. SUFENTANIL [Suspect]
     Active Substance: SUFENTANIL
     Indication: SPINAL PAIN
     Dosage: ONE SLOW AND SPLIT INJECTION
     Route: 008
  14. ADRENALINE [Suspect]
     Active Substance: EPINEPHRINE
     Indication: ANAESTHESIA
     Dosage: 1 DOSAGE FORM, UNK
     Route: 008
  15. NEFOPAM [Suspect]
     Active Substance: NEFOPAM
     Indication: ANALGESIC THERAPY
     Dosage: 160 MILLIGRAM, ONCE A DAY
     Route: 065
  16. LIDOCAINE SOLUTION FOR INJECTION [Suspect]
     Active Substance: LIDOCAINE
     Indication: EPIDURAL ANAESTHESIA
     Dosage: 15 ML, UNK
     Route: 008
  17. ROPIVACAINE. [Suspect]
     Active Substance: ROPIVACAINE HYDROCHLORIDE
     Indication: SPINAL PAIN
     Dosage: ONE SLOW AND SPLIT INJECTION
     Route: 008
  18. ROPIVACAINE. [Suspect]
     Active Substance: ROPIVACAINE HYDROCHLORIDE
     Indication: ANAESTHESIA
     Dosage: 1 MILLIGRAM PER MILLILITRE
     Route: 008
  19. KETOPROFEN. [Suspect]
     Active Substance: KETOPROFEN
     Indication: ANALGESIC THERAPY
     Dosage: 200 MILLIGRAM, ONCE A DAY
     Route: 048
  20. PARACETAMOL TABLET [Suspect]
     Active Substance: ACETAMINOPHEN
     Indication: ANALGESIC THERAPY
     Dosage: 4 GRAM, ONCE A DAY
     Route: 048
  21. PARACETAMOL TABLET [Suspect]
     Active Substance: ACETAMINOPHEN
     Dosage: 16 GRAM, ONCE A DAY
     Route: 048
  22. NEFOPAM [Suspect]
     Active Substance: NEFOPAM
     Indication: ANAESTHESIA

REACTIONS (14)
  - Gait disturbance [Recovered/Resolved]
  - Maternal exposure during pregnancy [Recovered/Resolved]
  - Epidural haemorrhage [Recovered/Resolved]
  - Exposure during pregnancy [Unknown]
  - Nervous system disorder [Recovered/Resolved]
  - Paraesthesia [Recovered/Resolved]
  - Epistaxis [Unknown]
  - Live birth [Unknown]
  - Spinal epidural haemorrhage [Recovered/Resolved]
  - Epidural analgesia [Recovering/Resolving]
  - Foetal heart rate abnormal [Recovering/Resolving]
  - Product use issue [Unknown]
  - Neuropathy peripheral [Recovered/Resolved]
  - Peripheral nerve injury [Recovered/Resolved]
